FAERS Safety Report 9972967 (Version 2)
Quarter: 2014Q2

REPORT INFORMATION
  Report Type: Spontaneous
  Country: IT (occurrence: IT)
  Receive Date: 20140306
  Receipt Date: 20140425
  Transmission Date: 20141212
  Serious: Yes (Hospitalization)
  Sender: FDA-Public Use
  Company Number: IT-PFIZER INC-2014061020

PATIENT
  Age: 82 Year
  Sex: Male

DRUGS (9)
  1. RAMIPRIL [Suspect]
     Dosage: 10 MG, DAILY
     Route: 048
     Dates: start: 20100101, end: 20140222
  2. FUROSEMIDE [Suspect]
     Dosage: 25 MG, DAILY
     Route: 048
     Dates: start: 20100101
  3. DIURESIX [Suspect]
     Dosage: 1 DF, DAILY
     Route: 048
     Dates: start: 20131201, end: 20140222
  4. NORVASC [Concomitant]
     Dosage: UNK
  5. CO-EFFERALGAN [Concomitant]
     Dosage: UNK
  6. ANSIOLIN [Concomitant]
     Dosage: UNK
  7. ATENOLOL [Concomitant]
     Dosage: UNK
  8. SIMVASTATIN [Concomitant]
     Dosage: UNK
  9. ALLOPURINOL [Concomitant]
     Dosage: 300 MG, UNK
     Route: 048

REACTIONS (1)
  - Hyponatraemia [Recovering/Resolving]
